FAERS Safety Report 18083339 (Version 1)
Quarter: 2020Q3

REPORT INFORMATION
  Report Type: Report from Study
  Country: SE (occurrence: SE)
  Receive Date: 20200728
  Receipt Date: 20200728
  Transmission Date: 20201103
  Serious: Yes (Hospitalization)
  Sender: FDA-Public Use
  Company Number: SE-ROCHE-2624427

PATIENT
  Age: 42 Year
  Sex: Male
  Weight: 98.3 kg

DRUGS (38)
  1. METOCLOPRAMIDE. [Concomitant]
     Active Substance: METOCLOPRAMIDE
  2. ORUDIS [Concomitant]
     Active Substance: KETOPROFEN
  3. PARACETAMOL [Concomitant]
     Active Substance: ACETAMINOPHEN
  4. IFOSFAMIDE. [Suspect]
     Active Substance: IFOSFAMIDE
     Indication: B-CELL LYMPHOMA
     Route: 042
     Dates: start: 20200317, end: 20200318
  5. DELTISON [Concomitant]
     Active Substance: PREDNISONE
  6. FLUCONAZOLE. [Concomitant]
     Active Substance: FLUCONAZOLE
  7. OXYCONTIN [Concomitant]
     Active Substance: OXYCODONE HYDROCHLORIDE
  8. TARGINIQ ER [Concomitant]
     Active Substance: NALOXONE HYDROCHLORIDE\OXYCODONE HYDROCHLORIDE
  9. PHENOXYMETHYLPENICILLIN [Concomitant]
     Active Substance: PENICILLIN V
  10. RITUXIMAB. [Suspect]
     Active Substance: RITUXIMAB
     Dosage: ONCE
     Route: 042
  11. ETOPOSIDE. [Suspect]
     Active Substance: ETOPOSIDE
     Route: 042
  12. CARBOPLATIN. [Suspect]
     Active Substance: CARBOPLATIN
     Route: 042
  13. FRAGMIN [Concomitant]
     Active Substance: DALTEPARIN SODIUM
  14. ERYTHROCYTES, CONCENTRATED [Concomitant]
  15. FURIX [FUROSEMIDE] [Concomitant]
     Active Substance: FUROSEMIDE
  16. OXYNORM [Concomitant]
     Active Substance: OXYCODONE HYDROCHLORIDE
  17. RECTOGESIC [Concomitant]
  18. PLATELETS [Concomitant]
     Active Substance: HUMAN PLATELET, ALLOGENIC
  19. ZOPICLONE [Concomitant]
     Active Substance: ZOPICLONE
  20. SODIUM BICARBONATE. [Concomitant]
     Active Substance: SODIUM BICARBONATE
  21. ETOPOSIDE. [Suspect]
     Active Substance: ETOPOSIDE
     Indication: B-CELL LYMPHOMA
     Route: 042
     Dates: start: 20200316, end: 20200318
  22. ATARAX [Concomitant]
     Active Substance: HYDROXYZINE HYDROCHLORIDE
  23. MOVICOL [Concomitant]
     Active Substance: POLYETHYLENE GLYCOL 3350\POTASSIUM CHLORIDE\SODIUM BICARBONATE\SODIUM CHLORIDE
  24. PIPERACILLIN. [Concomitant]
     Active Substance: PIPERACILLIN SODIUM
  25. RITUXIMAB. [Suspect]
     Active Substance: RITUXIMAB
     Indication: B-CELL LYMPHOMA
     Route: 042
     Dates: start: 20200318, end: 20200318
  26. ONDANSETRON [Concomitant]
     Active Substance: ONDANSETRON
  27. SCHERIPROCT NEO [Concomitant]
  28. BACTRIM [Concomitant]
     Active Substance: SULFAMETHOXAZOLE\TRIMETHOPRIM
  29. OMEPRAZOLE. [Concomitant]
     Active Substance: OMEPRAZOLE
  30. VALTREX [Concomitant]
     Active Substance: VALACYCLOVIR HYDROCHLORIDE
  31. XYLOCAINE [Concomitant]
     Active Substance: LIDOCAINE HYDROCHLORIDE
  32. ZARZIO [Concomitant]
     Active Substance: FILGRASTIM
  33. CARBOPLATIN. [Suspect]
     Active Substance: CARBOPLATIN
     Indication: B-CELL LYMPHOMA
     Route: 042
     Dates: start: 20200317, end: 20200317
  34. IFOSFAMIDE. [Suspect]
     Active Substance: IFOSFAMIDE
     Route: 042
  35. MERONEM [Concomitant]
     Active Substance: MEROPENEM
  36. AMITRIPTYLINE [Concomitant]
     Active Substance: AMITRIPTYLINE
  37. CAFFEINE. [Concomitant]
     Active Substance: CAFFEINE
  38. OXAZEPAM. [Concomitant]
     Active Substance: OXAZEPAM

REACTIONS (2)
  - Pyrexia [Recovered/Resolved]
  - Femur fracture [Recovered/Resolved with Sequelae]

NARRATIVE: CASE EVENT DATE: 20200325
